FAERS Safety Report 4461997-7 (Version None)
Quarter: 2004Q3

REPORT INFORMATION
  Report Type: 
  Country: None (occurrence: None)
  Receive Date: 20040924
  Receipt Date: 20040915
  Transmission Date: 20050211
  Serious: Yes (Other)
  Sender: FDA-Public Use
  Company Number: 2004-09-0804

PATIENT
  Age: 30 Year
  Sex: Female

DRUGS (4)
  1. TEMODAL [Suspect]
     Indication: GLIOMA
     Dosage: SEE IMAGE
     Route: 048
     Dates: start: 20040914, end: 20040914
  2. TEMODAL [Suspect]
     Indication: RECURRENT CANCER
     Dosage: SEE IMAGE
     Route: 048
     Dates: start: 20040914, end: 20040914
  3. TEMODAL [Suspect]
     Indication: GLIOMA
     Dosage: SEE IMAGE
     Route: 048
     Dates: end: 20040914
  4. TEMODAL [Suspect]
     Indication: RECURRENT CANCER
     Dosage: SEE IMAGE
     Route: 048
     Dates: end: 20040914

REACTIONS (1)
  - INTENTIONAL OVERDOSE [None]
